FAERS Safety Report 13797988 (Version 1)
Quarter: 2017Q3

REPORT INFORMATION
  Report Type: Spontaneous
  Country: US (occurrence: US)
  Receive Date: 20170727
  Receipt Date: 20170727
  Transmission Date: 20171127
  Serious: No
  Sender: FDA-Public Use
  Company Number: US-PFIZER INC-2017103918

PATIENT
  Age: 69 Year
  Sex: Female
  Weight: 68.27 kg

DRUGS (1)
  1. XELJANZ [Suspect]
     Active Substance: TOFACITINIB CITRATE
     Indication: RHEUMATOID ARTHRITIS
     Dosage: 5 MG, 1X/DAY
     Route: 048
     Dates: start: 2015

REACTIONS (6)
  - Pain [Unknown]
  - Body height decreased [Unknown]
  - Memory impairment [Unknown]
  - Fall [Unknown]
  - Weight increased [Unknown]
  - Concussion [Unknown]
